FAERS Safety Report 20525374 (Version 2)
Quarter: 2022Q1

REPORT INFORMATION
  Report Type: Spontaneous
  Country: CA (occurrence: CA)
  Receive Date: 20220228
  Receipt Date: 20220303
  Transmission Date: 20220424
  Serious: Yes (Hospitalization)
  Sender: FDA-Public Use
  Company Number: CA-GLAXOSMITHKLINE-CA2022AMR033575

PATIENT
  Sex: Male

DRUGS (3)
  1. BENLYSTA [Suspect]
     Active Substance: BELIMUMAB
     Indication: Systemic lupus erythematosus
     Dosage: 700 MG
  2. BENLYSTA [Suspect]
     Active Substance: BELIMUMAB
     Dosage: 700 MG
  3. BENLYSTA [Suspect]
     Active Substance: BELIMUMAB
     Dosage: UNK

REACTIONS (6)
  - Arthralgia [Unknown]
  - Myalgia [Unknown]
  - Nasopharyngitis [Unknown]
  - Flatulence [Unknown]
  - Disease risk factor [Unknown]
  - Ill-defined disorder [Unknown]
